FAERS Safety Report 5928749-X (Version None)
Quarter: 2008Q4

REPORT INFORMATION
  Report Type: 
  Country: None (occurrence: None)
  Receive Date: 20081023
  Receipt Date: 20080813
  Transmission Date: 20090506
  Serious: Yes (Hospitalization)
  Sender: FDA-Public Use
  Company Number: FR-GILEAD-2008-0017818

PATIENT
  Age: 47 Year
  Sex: Male

DRUGS (10)
  1. TRUVADA [Suspect]
     Indication: HIV INFECTION
     Route: 048
     Dates: end: 20080206
  2. VIREAD [Suspect]
     Indication: HIV INFECTION
     Dates: end: 20080101
  3. VISTIDE [Suspect]
     Indication: CASTLEMAN'S DISEASE
     Route: 042
     Dates: start: 20071201, end: 20080101
  4. AMIKLIN [Suspect]
     Indication: SEPTIC SHOCK
     Dates: start: 20071226, end: 20080101
  5. TARGOCID [Suspect]
     Indication: SEPTIC SHOCK
     Dates: start: 20071226, end: 20080112
  6. KALETRA [Concomitant]
  7. KIVEXA [Concomitant]
  8. NEXIUM [Concomitant]
  9. ATARAX [Concomitant]
  10. BACTRIM DS [Concomitant]

REACTIONS (2)
  - RENAL FAILURE ACUTE [None]
  - SEPTIC SHOCK [None]
